FAERS Safety Report 8290958-5 (Version None)
Quarter: 2012Q2

REPORT INFORMATION
  Report Type: 
  Country: None (occurrence: None)
  Receive Date: 20120417
  Receipt Date: 20120130
  Transmission Date: 20120825
  Serious: No
  Sender: FDA-Public Use
  Company Number: US-ASTRAZENECA-2012SE06754

PATIENT
  Age: 56 Year
  Sex: Male
  Weight: 81.2 kg

DRUGS (6)
  1. FISH OIL [Concomitant]
  2. ASPIRIN [Concomitant]
     Indication: ANTICOAGULANT THERAPY
  3. GENERIC FLOMAX [Concomitant]
     Indication: PROSTATOMEGALY
  4. SIMVASTATIN [Concomitant]
     Indication: BLOOD CHOLESTEROL INCREASED
  5. NEXIUM [Suspect]
     Indication: SCLERODERMA
     Route: 048
     Dates: start: 19990101
  6. PHENOBARBITAL TAB [Concomitant]
     Indication: CONVULSION

REACTIONS (5)
  - DRUG DOSE OMISSION [None]
  - BLOOD CHOLESTEROL INCREASED [None]
  - OFF LABEL USE [None]
  - PROSTATOMEGALY [None]
  - VOMITING [None]
